FAERS Safety Report 8564464-4 (Version None)
Quarter: 2012Q3

REPORT INFORMATION
  Report Type: 
  Country: None (occurrence: None)
  Receive Date: 20120803
  Receipt Date: 20120725
  Transmission Date: 20120928
  Serious: Yes (Hospitalization)
  Sender: FDA-Public Use
  Company Number: DE-NOVOPROD-356646

PATIENT
  Age: 65 Year
  Sex: Male
  Weight: 89 kg

DRUGS (2)
  1. NORDITROPIN FLEXPRO [Suspect]
     Dosage: 0.1 MG, QD
     Route: 058
     Dates: start: 20120224
  2. NORDITROPIN FLEXPRO [Suspect]
     Indication: GROWTH HORMONE DEFICIENCY
     Dosage: 0.1 MG, UNK
     Route: 058
     Dates: start: 20111223, end: 20120212

REACTIONS (1)
  - CORONARY ARTERY BYPASS [None]
